FAERS Safety Report 10088044 (Version 5)
Quarter: 2014Q3

REPORT INFORMATION
  Report Type: Spontaneous
  Country: HU (occurrence: HU)
  Receive Date: 20140420
  Receipt Date: 20140921
  Transmission Date: 20150326
  Serious: Yes (Death, Hospitalization)
  Sender: FDA-Public Use
  Company Number: HU-ROCHE-1386009

PATIENT
  Age: 76 Year
  Sex: Female
  Weight: 62 kg

DRUGS (14)
  1. TREXAN (HUNGARY) [Suspect]
     Active Substance: METHOTREXATE SODIUM
     Indication: RHEUMATOID ARTHRITIS
     Route: 048
     Dates: start: 200811
  2. CHOLECALCIFEROL [Concomitant]
     Active Substance: CHOLECALCIFEROL
     Route: 065
  3. LANSOPRAZOLE. [Concomitant]
     Active Substance: LANSOPRAZOLE
     Route: 065
  4. TREXAN (HUNGARY) [Suspect]
     Active Substance: METHOTREXATE SODIUM
     Route: 048
  5. TREXAN (HUNGARY) [Suspect]
     Active Substance: METHOTREXATE SODIUM
     Route: 048
     Dates: start: 20090605
  6. STIMULOTON [Concomitant]
     Route: 065
  7. ROACTEMRA [Suspect]
     Active Substance: TOCILIZUMAB
     Indication: RHEUMATOID ARTHRITIS
     Dosage: 400MG (I) + 80MG (I).
     Route: 042
     Dates: start: 20120501, end: 20140402
  8. CHOLECALCIFEROL [Concomitant]
     Active Substance: CHOLECALCIFEROL
     Indication: OSTEOPOROSIS
     Route: 065
  9. APRANAX [Concomitant]
     Active Substance: NAPROXEN
     Route: 065
  10. ALENDRONIC ACID [Concomitant]
     Active Substance: ALENDRONIC ACID
     Indication: OSTEOPOROSIS
     Route: 065
  11. TREXAN (HUNGARY) [Suspect]
     Active Substance: METHOTREXATE SODIUM
     Route: 048
     Dates: start: 20120815, end: 20140407
  12. NITROMINT RETARD [Concomitant]
     Dosage: 1-1-0
     Route: 065
  13. HUMA-FOLACID [Concomitant]
     Route: 065
  14. FURON [Concomitant]
     Dosage: NO POTASSIUM SHOULD BE TAKEN WITH THAT
     Route: 065

REACTIONS (9)
  - Renal failure chronic [Unknown]
  - Thrombocytopenia [Unknown]
  - Blood pressure decreased [Fatal]
  - Hypopnoea [Fatal]
  - Herpes simplex meningoencephalitis [Fatal]
  - Arrhythmia [Fatal]
  - Cerebral infarction [Not Recovered/Not Resolved]
  - Pyrexia [Unknown]
  - Pneumonia [Unknown]

NARRATIVE: CASE EVENT DATE: 20140406
